FAERS Safety Report 9351891 (Version 3)
Quarter: 2013Q2

REPORT INFORMATION
  Report Type: Spontaneous
  Country: CA (occurrence: CA)
  Receive Date: 20130617
  Receipt Date: 20130628
  Transmission Date: 20140414
  Serious: Yes (Other)
  Sender: FDA-Public Use
  Company Number: CA-GLAXOSMITHKLINE-A1024222A

PATIENT
  Age: 49 Year
  Sex: Female
  Weight: 58.6 kg

DRUGS (8)
  1. VOTRIENT [Suspect]
     Indication: SARCOMA
     Dosage: 400MG PER DAY
     Route: 048
     Dates: start: 20130515
  2. VITAMIN C [Concomitant]
  3. VITAMIN D [Concomitant]
  4. VITAMIN B12 [Concomitant]
  5. TYLENOL [Concomitant]
     Dosage: 3TABS TWICE PER DAY
     Route: 048
  6. VITAMIN B [Concomitant]
  7. FENTANYL [Concomitant]
     Indication: PAIN
  8. SUPEUDOL [Concomitant]
     Indication: PAIN

REACTIONS (14)
  - Diarrhoea [Recovered/Resolved]
  - Constipation [Unknown]
  - Nausea [Recovered/Resolved]
  - Vomiting [Not Recovered/Not Resolved]
  - Abdominal pain [Not Recovered/Not Resolved]
  - Gait disturbance [Recovering/Resolving]
  - Fatigue [Unknown]
  - Headache [Unknown]
  - Hepatic enzyme increased [Recovering/Resolving]
  - Blood creatinine increased [Recovered/Resolved]
  - Metastases to liver [Unknown]
  - Blood lactate dehydrogenase increased [Recovered/Resolved]
  - Blood magnesium decreased [Not Recovered/Not Resolved]
  - Asthenia [Not Recovered/Not Resolved]
